FAERS Safety Report 11541923 (Version 5)
Quarter: 2015Q4

REPORT INFORMATION
  Report Type: Report from Study
  Country: US (occurrence: US)
  Receive Date: 20150923
  Receipt Date: 20151111
  Transmission Date: 20160304
  Serious: Yes (Other)
  Sender: FDA-Public Use
  Company Number: US-AMGEN-USASP2015097607

PATIENT
  Age: 54 Year
  Sex: Female

DRUGS (1)
  1. ENBREL [Suspect]
     Active Substance: ETANERCEPT
     Indication: RHEUMATOID ARTHRITIS
     Dosage: 50 MG, QWK
     Route: 065
     Dates: start: 20150827, end: 2015

REACTIONS (6)
  - Contusion [Unknown]
  - Laceration [Unknown]
  - Haemorrhage [Unknown]
  - Purulent discharge [Unknown]
  - Skin atrophy [Unknown]
  - Limb injury [Unknown]

NARRATIVE: CASE EVENT DATE: 2015
